FAERS Safety Report 11202207 (Version 1)
Quarter: 2015Q2

REPORT INFORMATION
  Report Type: Spontaneous
  Country: DE (occurrence: DE)
  Receive Date: 20150619
  Receipt Date: 20150619
  Transmission Date: 20150821
  Serious: Yes (Hospitalization)
  Sender: FDA-Public Use
  Company Number: DE-TEVA-561420GER

PATIENT
  Age: 36 Year
  Sex: Female
  Weight: 91 kg

DRUGS (1)
  1. LAMOTRIGIN-TEVA 200 MG [Suspect]
     Active Substance: LAMOTRIGINE
     Indication: EPILEPSY
     Dosage: 500 MILLIGRAM DAILY;
     Route: 048
     Dates: start: 20120719

REACTIONS (2)
  - Epilepsy [Recovered/Resolved]
  - Drug level decreased [Unknown]

NARRATIVE: CASE EVENT DATE: 201504
